FAERS Safety Report 5661086-X (Version None)
Quarter: 2008Q1

REPORT INFORMATION
  Report Type: 
  Country: None (occurrence: None)
  Receive Date: 20080204
  Receipt Date: 20071214
  Transmission Date: 20080703
  Serious: Yes (Other)
  Sender: FDA-Public Use
  Company Number: PHEH2007US15798

PATIENT
  Sex: Male

DRUGS (1)
  1. EXELON [Suspect]
     Dosage: 9.5 MG, TRANSDERMAL
     Route: 062
     Dates: start: 20071212, end: 20071213

REACTIONS (2)
  - AGITATION [None]
  - HALLUCINATION [None]
